FAERS Safety Report 23944855 (Version 1)
Quarter: 2024Q2

REPORT INFORMATION
  Report Type: Spontaneous
  Country: US (occurrence: US)
  Receive Date: 20240606
  Receipt Date: 20240606
  Transmission Date: 20240715
  Serious: No
  Sender: FDA-Public Use
  Company Number: US-JNJFOC-20240570547

PATIENT
  Age: 69 Year
  Sex: Female

DRUGS (1)
  1. WOMENS ROGAINE UNSCENTED [Suspect]
     Active Substance: MINOXIDIL
     Indication: Alopecia
     Dosage: CAP FULL 2 TIMES
     Route: 061
     Dates: start: 20240202, end: 2024

REACTIONS (2)
  - Dysgeusia [Unknown]
  - Overdose [Unknown]

NARRATIVE: CASE EVENT DATE: 20240101
